FAERS Safety Report 7274752-X (Version None)
Quarter: 2011Q1

REPORT INFORMATION
  Report Type: 
  Country: None (occurrence: None)
  Receive Date: 20110128
  Receipt Date: 20110118
  Transmission Date: 20110831
  Serious: Yes (Death, Life-Threatening)
  Sender: FDA-Public Use
  Company Number: 2007-00957

PATIENT
  Age: 69 Year
  Sex: Female
  Weight: 47 kg

DRUGS (13)
  1. PIPERACILLIN SODIUM [Concomitant]
  2. GASTER (FAMOTIDINE) [Concomitant]
  3. COTRIM [Concomitant]
  4. SIMVASTATIN [Concomitant]
  5. MOBIC [Concomitant]
  6. VELCADE [Suspect]
     Indication: MULTIPLE MYELOMA
     Dosage: 1.7 MG, 1.3 MG, INTRAVENOUS, 1.7 MG, INTRAVENOUS, 1.5 MG, INTRAVENOUS
     Route: 042
     Dates: start: 20070206, end: 20070216
  7. VELCADE [Suspect]
     Indication: MULTIPLE MYELOMA
     Dosage: 1.7 MG, 1.3 MG, INTRAVENOUS, 1.7 MG, INTRAVENOUS, 1.5 MG, INTRAVENOUS
     Route: 042
     Dates: start: 20070116, end: 20070123
  8. VELCADE [Suspect]
     Indication: MULTIPLE MYELOMA
     Dosage: 1.7 MG, 1.3 MG, INTRAVENOUS, 1.7 MG, INTRAVENOUS, 1.5 MG, INTRAVENOUS
     Route: 042
     Dates: start: 20070522, end: 20080303
  9. VELCADE [Suspect]
     Indication: MULTIPLE MYELOMA
     Dosage: 1.7 MG, 1.3 MG, INTRAVENOUS, 1.7 MG, INTRAVENOUS, 1.5 MG, INTRAVENOUS
     Route: 042
     Dates: start: 20070126, end: 20070126
  10. ZOMETA [Suspect]
     Indication: PRODUCT USED FOR UNKNOWN INDICATION
     Dosage: 4 MG, INTRAVENOUS
     Route: 042
     Dates: start: 20070820
  11. MAGNESIUM OXIDE (MAGNESIUM OXIDE) [Concomitant]
  12. ISOSORBIDE MONONITRATE [Concomitant]
  13. ADALAT CC [Concomitant]

REACTIONS (12)
  - MULTIPLE MYELOMA [None]
  - WHITE BLOOD CELL COUNT DECREASED [None]
  - HERPES ZOSTER [None]
  - BONE PAIN [None]
  - MALAISE [None]
  - URINARY INCONTINENCE [None]
  - PLATELET COUNT DECREASED [None]
  - OEDEMA PERIPHERAL [None]
  - NEOPLASM MALIGNANT [None]
  - DECREASED APPETITE [None]
  - FAECAL INCONTINENCE [None]
  - PAIN [None]
